FAERS Safety Report 17530019 (Version 1)
Quarter: 2020Q1

REPORT INFORMATION
  Report Type: Spontaneous
  Country: US (occurrence: US)
  Receive Date: 20200311
  Receipt Date: 20200311
  Transmission Date: 20200409
  Serious: No
  Sender: FDA-Public Use
  Company Number: US-THE RITEDOSE CORPORATION-2019RIT000275

PATIENT

DRUGS (2)
  1. IPRATROPIUM BROMIDE INHALATION SOLUTION [Suspect]
     Active Substance: IPRATROPIUM BROMIDE
     Dosage: ONE VIAL EVERY 6 HOURS AS NEEDED
     Route: 055
  2. IPRATROPIUM BROMIDE INHALATION SOLUTION [Suspect]
     Active Substance: IPRATROPIUM BROMIDE
     Indication: ASTHMA
     Dosage: ONE VIAL VIA NEBULIZER EVERY 4 HOURS AS NEEDED
     Route: 055
     Dates: start: 2004

REACTIONS (2)
  - Chest pain [Not Recovered/Not Resolved]
  - Product use in unapproved indication [Unknown]
